FAERS Safety Report 5192321-2 (Version None)
Quarter: 2006Q4

REPORT INFORMATION
  Report Type: 
  Country: None (occurrence: None)
  Receive Date: 20061227
  Receipt Date: 20040701
  Transmission Date: 20070319
  Serious: Yes (Life-Threatening, Hospitalization)
  Sender: FDA-Public Use
  Company Number: JP-PFIZER INC-2004221951JP

PATIENT
  Sex: Female
  Weight: 50 kg

DRUGS (6)
  1. CABASER [Suspect]
     Indication: PARKINSON'S DISEASE
     Dosage: DAILY DOSE:2MG
     Route: 048
     Dates: start: 20020124, end: 20040630
  2. LOXOPROFEN SODIUM [Suspect]
     Indication: OEDEMA PERIPHERAL
     Route: 048
     Dates: start: 20040623, end: 20040630
  3. ENTACAPONE [Suspect]
     Indication: PARKINSON'S DISEASE
     Dosage: DAILY DOSE:1000MG
     Route: 048
     Dates: start: 20030327, end: 20040614
  4. NEO DOPASTON [Concomitant]
     Route: 048
     Dates: start: 20030925, end: 20040713
  5. SYMMETREL [Concomitant]
     Route: 048
     Dates: start: 19981027
  6. ARTANE [Concomitant]
     Route: 048
     Dates: start: 19981027

REACTIONS (27)
  - AORTIC VALVE INCOMPETENCE [None]
  - BLOOD PRESSURE DIASTOLIC DECREASED [None]
  - CARDIAC DISORDER [None]
  - CONDITION AGGRAVATED [None]
  - DRUG EFFECT DECREASED [None]
  - DRUG INTERACTION [None]
  - ENDOCARDITIS [None]
  - ERYTHEMA [None]
  - FACE OEDEMA [None]
  - FLUID RETENTION [None]
  - INDURATION [None]
  - INFLAMMATION [None]
  - MITRAL VALVE INCOMPETENCE [None]
  - MUSCULAR WEAKNESS [None]
  - OEDEMA PERIPHERAL [None]
  - PARKINSON'S DISEASE [None]
  - PERICARDIAL EFFUSION [None]
  - PLATELET COUNT DECREASED [None]
  - PLEURAL EFFUSION [None]
  - PNEUMONIA [None]
  - PRODUCTIVE COUGH [None]
  - PULMONARY OEDEMA [None]
  - PULMONARY VALVE INCOMPETENCE [None]
  - RESPIRATORY DISORDER [None]
  - THROMBOPHLEBITIS [None]
  - TRICUSPID VALVE INCOMPETENCE [None]
  - WEIGHT INCREASED [None]
